FAERS Safety Report 10592763 (Version 1)
Quarter: 2014Q4

REPORT INFORMATION
  Report Type: Spontaneous
  Country: US (occurrence: None)
  Receive Date: 20141118
  Receipt Date: 20141118
  Transmission Date: 20150529
  Serious: No
  Sender: FDA-Public Use
  Company Number: None

PATIENT
  Sex: Male

DRUGS (1)
  1. NEXAVAR [Suspect]
     Active Substance: SORAFENIB
     Indication: NEOPLASM MALIGNANT
     Route: 048
     Dates: start: 20140221, end: 201406

REACTIONS (5)
  - Neoplasm progression [None]
  - Urticaria [None]
  - Diarrhoea [None]
  - Nasopharyngitis [None]
  - Fatigue [None]
